FAERS Safety Report 4828962-9 (Version None)
Quarter: 2005Q4

REPORT INFORMATION
  Report Type: 
  Country: None (occurrence: None)
  Receive Date: 20051027
  Receipt Date: 20050117
  Transmission Date: 20060501
  Serious: Yes (Other)
  Sender: FDA-Public Use
  Company Number: HQWYE213917JUL04

PATIENT
  Age: 69 Year
  Sex: Female
  Weight: 59.47 kg

DRUGS (5)
  1. PREMARIN [Suspect]
     Indication: HOT FLUSH
     Dosage: 0.625MG
     Route: 048
     Dates: start: 19900101, end: 20020101
  2. PREMPRO [Suspect]
     Indication: HOT FLUSH
     Dosage: 0.625MG/2.5MG, ORAL
     Route: 048
     Dates: start: 19980101
  3. PROVERA [Suspect]
     Dosage: 2.5MG
     Dates: start: 19900101
  4. ZESTRIL [Concomitant]
  5. LOSALEN (FLUMETASONE PIVALATE/SALICYCLIC ACID) [Concomitant]

REACTIONS (1)
  - BREAST CANCER [None]
